FAERS Safety Report 10451604 (Version 1)
Quarter: 2014Q3

REPORT INFORMATION
  Report Type: Other
  Country: FR (occurrence: FR)
  Receive Date: 20140914
  Receipt Date: 20140914
  Transmission Date: 20150326
  Serious: Yes (Death, Hospitalization, Other)
  Sender: FDA-Public Use
  Company Number: FR-MYLAN-2014M1003845

PATIENT

DRUGS (6)
  1. TICLOPIDINE [Suspect]
     Active Substance: TICLOPIDINE
     Dosage: 2 DF, QD
     Route: 048
     Dates: start: 200901
  2. PREVISCAN                          /00261401/ [Suspect]
     Active Substance: PENTOXIFYLLINE
     Dosage: UNK
     Route: 048
     Dates: start: 200808
  3. FLUVASTATIN [Concomitant]
     Active Substance: FLUVASTATIN SODIUM
     Dosage: UNK
     Dates: start: 200811
  4. KENZEN [Concomitant]
     Active Substance: CANDESARTAN
     Dosage: UNK
     Dates: start: 200808
  5. ALLOPURINOL. [Concomitant]
     Active Substance: ALLOPURINOL
     Dosage: UNK
     Dates: start: 200705
  6. BISOPROLOL [Concomitant]
     Active Substance: BISOPROLOL
     Dosage: UNK
     Dates: start: 200902

REACTIONS (1)
  - Cerebrovascular accident [Fatal]

NARRATIVE: CASE EVENT DATE: 20110508
